FAERS Safety Report 12926525 (Version 2)
Quarter: 2016Q4

REPORT INFORMATION
  Report Type: Report from Study
  Country: None (occurrence: US)
  Receive Date: 20161109
  Receipt Date: 20161117
  Transmission Date: 20170207
  Serious: Yes (Hospitalization, Other)
  Sender: FDA-Public Use
  Company Number: US-ABBVIE-16K-163-1770699-00

PATIENT
  Age: 71 Year
  Sex: Male
  Weight: 93.07 kg

DRUGS (26)
  1. HUMIRA [Suspect]
     Active Substance: ADALIMUMAB
     Dosage: LOADING DOSE, TWO WEEKS AFTER 160 MG DOSE
     Route: 058
  2. DOXAZOSIN [Concomitant]
     Active Substance: DOXAZOSIN\DOXAZOSIN MESYLATE
     Indication: PRODUCT USED FOR UNKNOWN INDICATION
  3. MINOXIDIL. [Concomitant]
     Active Substance: MINOXIDIL
     Indication: HYPERTENSION
  4. FINASTERIDE. [Concomitant]
     Active Substance: FINASTERIDE
     Indication: PRODUCT USED FOR UNKNOWN INDICATION
  5. HUMIRA [Suspect]
     Active Substance: ADALIMUMAB
     Indication: CROHN^S DISEASE
     Dosage: LOADING DOSE
     Route: 058
     Dates: start: 201512, end: 201512
  6. FOLIC ACID. [Concomitant]
     Active Substance: FOLIC ACID
     Indication: PRODUCT USED FOR UNKNOWN INDICATION
  7. OMEPRAZOLE. [Concomitant]
     Active Substance: OMEPRAZOLE
     Indication: GASTROOESOPHAGEAL REFLUX DISEASE
  8. POTASSIUM [Concomitant]
     Active Substance: POTASSIUM
     Indication: PRODUCT USED FOR UNKNOWN INDICATION
  9. CLONIDINE. [Concomitant]
     Active Substance: CLONIDINE
     Indication: HYPERTENSION
  10. NITROLINGUAL [Concomitant]
     Active Substance: NITROGLYCERIN
     Indication: CHEST PAIN
  11. AMLODIPINE [Concomitant]
     Active Substance: AMLODIPINE BESYLATE
     Indication: PRODUCT USED FOR UNKNOWN INDICATION
  12. METOPROLOL. [Concomitant]
     Active Substance: METOPROLOL
     Indication: PRODUCT USED FOR UNKNOWN INDICATION
  13. PLAVIX [Concomitant]
     Active Substance: CLOPIDOGREL BISULFATE
     Indication: PRODUCT USED FOR UNKNOWN INDICATION
  14. ECOTRIN [Concomitant]
     Active Substance: ASPIRIN
     Indication: PRODUCT USED FOR UNKNOWN INDICATION
  15. LOSARTAN. [Concomitant]
     Active Substance: LOSARTAN
     Indication: PRODUCT USED FOR UNKNOWN INDICATION
  16. CRESTOR [Concomitant]
     Active Substance: ROSUVASTATIN CALCIUM
     Indication: BLOOD CHOLESTEROL INCREASED
  17. ASPIRIN. [Concomitant]
     Active Substance: ASPIRIN
     Indication: PRODUCT USED FOR UNKNOWN INDICATION
  18. TAMSULOSIN [Concomitant]
     Active Substance: TAMSULOSIN
     Indication: PRODUCT USED FOR UNKNOWN INDICATION
  19. CLOPIDOGREL [Concomitant]
     Active Substance: CLOPIDOGREL BISULFATE
     Indication: PRODUCT USED FOR UNKNOWN INDICATION
  20. BAYER ASPIRIN [Concomitant]
     Active Substance: ASPIRIN
     Indication: PRODUCT USED FOR UNKNOWN INDICATION
  21. CARVEDILOL. [Concomitant]
     Active Substance: CARVEDILOL
     Indication: PRODUCT USED FOR UNKNOWN INDICATION
  22. GLIMEPIRIDE. [Concomitant]
     Active Substance: GLIMEPIRIDE
     Indication: DIABETES MELLITUS
  23. PRAZOSIN [Concomitant]
     Active Substance: PRAZOSIN
     Indication: PRODUCT USED FOR UNKNOWN INDICATION
  24. HUMIRA [Suspect]
     Active Substance: ADALIMUMAB
     Dosage: TWO WEEKS AFTER 80 MG LOADING DOSE
     Route: 058
     Dates: start: 2016
  25. NITROGLYCERIN. [Concomitant]
     Active Substance: NITROGLYCERIN
     Indication: CHEST PAIN
  26. OXYBUTYNIN [Concomitant]
     Active Substance: OXYBUTYNIN
     Indication: PRODUCT USED FOR UNKNOWN INDICATION

REACTIONS (16)
  - Oxygen saturation decreased [Recovering/Resolving]
  - Chronic kidney disease [Not Recovered/Not Resolved]
  - Hypertension [Not Recovered/Not Resolved]
  - Disorientation [Not Recovered/Not Resolved]
  - Dyspnoea [Not Recovered/Not Resolved]
  - Dyspnoea [Not Recovered/Not Resolved]
  - Asthenia [Not Recovered/Not Resolved]
  - Hypertension [Recovered/Resolved]
  - Cardiac failure congestive [Not Recovered/Not Resolved]
  - Oedema [Unknown]
  - Oxygen saturation decreased [Unknown]
  - Peripheral swelling [Not Recovered/Not Resolved]
  - Hypertension [Recovering/Resolving]
  - Disorientation [Not Recovered/Not Resolved]
  - Dyspnoea exertional [Unknown]
  - Blood glucose decreased [Recovered/Resolved]

NARRATIVE: CASE EVENT DATE: 201604
